FAERS Safety Report 6134758-0 (Version None)
Quarter: 2009Q1

REPORT INFORMATION
  Report Type: 
  Country: None (occurrence: None)
  Receive Date: 20090327
  Receipt Date: 20090317
  Transmission Date: 20090719
  Serious: Yes (Other)
  Sender: FDA-Public Use
  Company Number: BR-BAYER-200913786LA

PATIENT
  Age: 49 Year
  Sex: Female
  Weight: 50 kg

DRUGS (3)
  1. ANGELIQ [Suspect]
     Indication: HORMONE REPLACEMENT THERAPY
     Route: 048
     Dates: start: 20090201
  2. LINDISC 50 [Concomitant]
     Indication: HORMONE REPLACEMENT THERAPY
     Route: 062
  3. LINDISC 50 [Concomitant]
     Route: 062
     Dates: start: 19980101

REACTIONS (6)
  - CONFUSIONAL STATE [None]
  - HOT FLUSH [None]
  - MALAISE [None]
  - MENOPAUSAL SYMPTOMS [None]
  - NERVOUSNESS [None]
  - SWELLING [None]
